FAERS Safety Report 7222219-7 (Version None)
Quarter: 2011Q1

REPORT INFORMATION
  Report Type: 
  Country: None (occurrence: None)
  Receive Date: 20110112
  Receipt Date: 20110106
  Transmission Date: 20110831
  Serious: Yes (Hospitalization, Other)
  Sender: FDA-Public Use
  Company Number: US-PFIZER INC-2010072355

PATIENT
  Sex: Male

DRUGS (3)
  1. IBUPROFEN [Concomitant]
     Indication: PAIN
     Dosage: UNK
     Dates: start: 20070611, end: 20080206
  2. CHANTIX [Suspect]
     Indication: SMOKING CESSATION THERAPY
     Dosage: 0.5MG LATER 1MG
     Dates: start: 20070612, end: 20080104
  3. CYCLOBENZAPRINE [Concomitant]
     Dosage: UNK
     Dates: start: 20070611, end: 20070816

REACTIONS (3)
  - NIGHTMARE [None]
  - SUICIDE ATTEMPT [None]
  - INTENTIONAL OVERDOSE [None]
